FAERS Safety Report 22125035 (Version 4)
Quarter: 2023Q2

REPORT INFORMATION
  Report Type: Spontaneous
  Country: US (occurrence: US)
  Receive Date: 20230322
  Receipt Date: 20230508
  Transmission Date: 20230722
  Serious: Yes (Other)
  Sender: FDA-Public Use
  Company Number: US-PFIZER INC-202300117021

PATIENT
  Age: 68 Year
  Sex: Female
  Weight: 62.14 kg

DRUGS (3)
  1. ESTRING [Suspect]
     Active Substance: ESTRADIOL
     Dosage: UNK
     Route: 067
  2. ESTRING [Suspect]
     Active Substance: ESTRADIOL
     Dosage: UNK
     Route: 067
     Dates: start: 20230316
  3. ESTRING [Suspect]
     Active Substance: ESTRADIOL
     Dosage: UNK, 2X/WEEK

REACTIONS (14)
  - Cystocele [Unknown]
  - Wrong technique in device usage process [Unknown]
  - Genital injury [Unknown]
  - Vaginal haemorrhage [Unknown]
  - Vaginal discharge [Unknown]
  - Fungal infection [Unknown]
  - Sleep deficit [Unknown]
  - Head discomfort [Unknown]
  - Fatigue [Unknown]
  - Speech disorder [Unknown]
  - Thinking abnormal [Unknown]
  - Urine odour abnormal [Unknown]
  - Vaginal odour [Unknown]
  - Vaginal infection [Unknown]

NARRATIVE: CASE EVENT DATE: 20230301
